FAERS Safety Report 23231040 (Version 1)
Quarter: 2023Q4

REPORT INFORMATION
  Report Type: Spontaneous
  Country: TR (occurrence: TR)
  Receive Date: 20231127
  Receipt Date: 20231127
  Transmission Date: 20240109
  Serious: Yes (Life-Threatening, Hospitalization, Other)
  Sender: FDA-Public Use
  Company Number: TR-SUN PHARMACEUTICAL INDUSTRIES LTD-2023R1-420353

PATIENT
  Age: 68 Year
  Sex: Male

DRUGS (12)
  1. METHYLPREDNISOLONE [Suspect]
     Active Substance: METHYLPREDNISOLONE
     Indication: Chronic obstructive pulmonary disease
     Dosage: 40 MILLIGRAM, DAILY
     Route: 065
  2. METHYLPREDNISOLONE [Suspect]
     Active Substance: METHYLPREDNISOLONE
     Indication: Pneumonia
  3. MEROPENEM [Suspect]
     Active Substance: MEROPENEM
     Indication: Chronic obstructive pulmonary disease
     Dosage: UNK (500 MG, BDS)
     Route: 065
  4. MEROPENEM [Suspect]
     Active Substance: MEROPENEM
     Indication: Pneumonia
  5. IPRATROPIUM [Suspect]
     Active Substance: IPRATROPIUM
     Indication: Chronic obstructive pulmonary disease
     Dosage: 600 MICROGRAM, DAILY
     Route: 065
  6. IPRATROPIUM [Suspect]
     Active Substance: IPRATROPIUM
     Indication: Pneumonia
  7. ALBUTEROL [Suspect]
     Active Substance: ALBUTEROL
     Indication: Chronic obstructive pulmonary disease
     Dosage: 600 MICROGRAM, DAILY
     Route: 065
  8. ALBUTEROL [Suspect]
     Active Substance: ALBUTEROL
     Indication: Pneumonia
  9. BUDESONIDE [Suspect]
     Active Substance: BUDESONIDE
     Indication: Chronic obstructive pulmonary disease
     Dosage: 400 MICROGRAM, DAILY
     Route: 065
  10. BUDESONIDE [Suspect]
     Active Substance: BUDESONIDE
     Indication: Pneumonia
  11. LINEZOLID [Suspect]
     Active Substance: LINEZOLID
     Indication: Chronic obstructive pulmonary disease
     Dosage: UNK (2 MG, BDS)
     Route: 065
  12. LINEZOLID [Suspect]
     Active Substance: LINEZOLID
     Indication: Pneumonia

REACTIONS (6)
  - Respiratory failure [Recovering/Resolving]
  - Drug ineffective [Unknown]
  - Acinetobacter infection [Recovering/Resolving]
  - Atelectasis [Recovering/Resolving]
  - Lung infiltration [Recovering/Resolving]
  - Skin hyperpigmentation [Recovering/Resolving]
